FAERS Safety Report 25273891 (Version 5)
Quarter: 2025Q3

REPORT INFORMATION
  Report Type: Spontaneous
  Country: US (occurrence: US)
  Receive Date: 20250506
  Receipt Date: 20250926
  Transmission Date: 20251020
  Serious: Yes (Death, Life-Threatening, Hospitalization, Other)
  Sender: AUROBINDO
  Company Number: US-AUROBINDO-AUR-APL-2025-023064

PATIENT
  Age: 8 Decade
  Sex: Female

DRUGS (10)
  1. CYCLOPHOSPHAMIDE [Suspect]
     Active Substance: CYCLOPHOSPHAMIDE
     Indication: Post transplant lymphoproliferative disorder
     Route: 065
  2. PREDNISONE [Suspect]
     Active Substance: PREDNISONE
     Indication: Post transplant lymphoproliferative disorder
     Route: 065
  3. PREDNISONE [Suspect]
     Active Substance: PREDNISONE
     Indication: Immunosuppressant drug therapy
  4. CELLCEPT [Suspect]
     Active Substance: MYCOPHENOLATE MOFETIL
     Indication: Prophylaxis
     Dosage: 150 MILLIGRAM, TWO TIMES A DAY
     Route: 065
  5. CELLCEPT [Suspect]
     Active Substance: MYCOPHENOLATE MOFETIL
     Indication: Immunosuppressant drug therapy
  6. DOXORUBICIN [Suspect]
     Active Substance: DOXORUBICIN
     Indication: Post transplant lymphoproliferative disorder
     Route: 065
  7. RITUXIMAB [Suspect]
     Active Substance: RITUXIMAB
     Indication: Post transplant lymphoproliferative disorder
     Route: 065
  8. TACROLIMUS [Suspect]
     Active Substance: TACROLIMUS
     Indication: Post transplant lymphoproliferative disorder
     Dosage: 3 MILLIGRAM, TWO TIMES A DAY
     Route: 065
  9. TACROLIMUS [Suspect]
     Active Substance: TACROLIMUS
     Indication: Immunosuppressant drug therapy
  10. VINCRISTINE [Suspect]
     Active Substance: VINCRISTINE
     Indication: Post transplant lymphoproliferative disorder
     Route: 065

REACTIONS (11)
  - Distributive shock [Fatal]
  - Diffuse large B-cell lymphoma [Fatal]
  - Epstein-Barr virus associated lymphoma [Fatal]
  - Post transplant lymphoproliferative disorder [Fatal]
  - Acute respiratory distress syndrome [Unknown]
  - Atrial fibrillation [Unknown]
  - Cytokine storm [Unknown]
  - Disease progression [Unknown]
  - Large intestinal obstruction [Unknown]
  - Immunosuppressant drug level increased [Unknown]
  - Drug ineffective [Unknown]
